FAERS Safety Report 24603814 (Version 1)
Quarter: 2024Q4

REPORT INFORMATION
  Report Type: Spontaneous
  Country: US (occurrence: US)
  Receive Date: 20241111
  Receipt Date: 20241111
  Transmission Date: 20250115
  Serious: Yes (Death, Life-Threatening, Hospitalization, Other)
  Sender: PAREXEL
  Company Number: US-INNOVIVA SPECIALTY THERAPEUTICS-2024-ISTX-000090

PATIENT

DRUGS (2)
  1. XACDURO [Suspect]
     Active Substance: DURLOBACTAM SODIUM\SULBACTAM SODIUM
     Indication: Burkholderia infection
     Dosage: UNK
     Route: 065
  2. XACDURO [Suspect]
     Active Substance: DURLOBACTAM SODIUM\SULBACTAM SODIUM
     Indication: Device related infection

REACTIONS (2)
  - Death [Fatal]
  - Off label use [Fatal]
